FAERS Safety Report 7555930-9 (Version None)
Quarter: 2011Q2

REPORT INFORMATION
  Report Type: 
  Country: None (occurrence: None)
  Receive Date: 20110618
  Receipt Date: 20110606
  Transmission Date: 20111010
  Serious: Yes (Other)
  Sender: FDA-Public Use
  Company Number: US-ELI_LILLY_AND_COMPANY-US201106002680

PATIENT
  Sex: Female

DRUGS (10)
  1. FENTANYL-100 [Concomitant]
  2. VALIUM [Concomitant]
     Indication: BACK PAIN
  3. ARAVA [Concomitant]
     Dosage: UNK UNK, UNKNOWN
  4. ARAVA [Concomitant]
     Dosage: UNK
  5. FORTEO [Suspect]
     Dosage: 20 UG, QD
     Dates: start: 20110517
  6. OXYGEN [Concomitant]
  7. PATANOL [Concomitant]
     Dosage: 20 MG, QD
     Dates: start: 20090101
  8. ORENCIA [Concomitant]
     Dosage: UNK UNK, UNKNOWN
     Dates: start: 20110501
  9. ORENCIA [Concomitant]
     Dosage: UNK UNK, UNKNOWN
     Dates: start: 20110501
  10. FORTEO [Suspect]
     Indication: OSTEOPOROSIS
     Dosage: 20 UG, QD
     Dates: start: 20100201

REACTIONS (14)
  - FATIGUE [None]
  - VITAMIN D DECREASED [None]
  - HEADACHE [None]
  - RETINAL TEAR [None]
  - WEIGHT DECREASED [None]
  - SURGICAL FAILURE [None]
  - ASTHENIA [None]
  - SOMNOLENCE [None]
  - LUNG INFECTION [None]
  - JOINT RANGE OF MOTION DECREASED [None]
  - OXYGEN SATURATION DECREASED [None]
  - ROAD TRAFFIC ACCIDENT [None]
  - WITHDRAWAL SYNDROME [None]
  - CATARACT [None]
